FAERS Safety Report 12442387 (Version 5)
Quarter: 2016Q4

REPORT INFORMATION
  Report Type: Report from Study
  Country: DE (occurrence: DE)
  Receive Date: 20160607
  Receipt Date: 20161221
  Transmission Date: 20170207
  Serious: Yes (Other)
  Sender: FDA-Public Use
  Company Number: PHHY2016DE076007

PATIENT
  Age: 56 Year
  Sex: Male
  Weight: 103 kg

DRUGS (19)
  1. ILARIS [Suspect]
     Active Substance: CANAKINUMAB
     Indication: GOUT
  2. ARCOXIA [Concomitant]
     Active Substance: ETORICOXIB
     Indication: GOUTY ARTHRITIS
     Dosage: 90-120 MG, QD
     Route: 048
     Dates: start: 20120101, end: 20151119
  3. PREDNISOLONE. [Concomitant]
     Active Substance: PREDNISOLONE
     Indication: GOUT
     Dosage: 16 MG, UNK
     Route: 048
     Dates: start: 20160627, end: 20160629
  4. VALORON [Concomitant]
     Active Substance: TILIDINE HYDROCHLORIDE
     Indication: GOUTY ARTHRITIS
     Dosage: 32 MG, UNK
     Route: 048
     Dates: start: 20160829, end: 20160903
  5. VALORON [Concomitant]
     Active Substance: TILIDINE HYDROCHLORIDE
     Dosage: 16 MG, UNK
     Route: 048
     Dates: start: 20160916, end: 20161104
  6. COLCHICUM [Concomitant]
     Active Substance: COLCHICINE
     Indication: GOUTY ARTHRITIS
     Dosage: 0.5 MG, UNK
     Route: 048
     Dates: start: 20160907, end: 20160915
  7. COLCHICUM [Concomitant]
     Active Substance: COLCHICINE
     Dosage: 8 MG, UNK
     Route: 048
     Dates: start: 20161026, end: 20161118
  8. VALORON [Concomitant]
     Active Substance: TILIDINE HYDROCHLORIDE
     Dosage: 16 MG, UNK
     Route: 048
     Dates: start: 20160904, end: 20160905
  9. PREDNISOLONE. [Concomitant]
     Active Substance: PREDNISOLONE
     Dosage: 16 MG, UNK
     Route: 048
     Dates: start: 20160916, end: 20161025
  10. PREDNISOLONE. [Concomitant]
     Active Substance: PREDNISOLONE
     Dosage: 8 MG, UNK
     Route: 048
     Dates: start: 20161026, end: 20161028
  11. PREDNISOLONE. [Concomitant]
     Active Substance: PREDNISOLONE
     Dosage: 4 MG, UNK
     Route: 048
     Dates: start: 20161029, end: 20161118
  12. COLCHICUM [Concomitant]
     Active Substance: COLCHICINE
     Dosage: 21 MG, UNK
     Route: 048
     Dates: start: 20160916, end: 20161025
  13. ILARIS [Suspect]
     Active Substance: CANAKINUMAB
     Indication: GOUTY ARTHRITIS
     Dosage: 150 MG, UNK (PER APPLICATION)
     Route: 058
     Dates: start: 20151118
  14. COLCHICINE. [Concomitant]
     Active Substance: COLCHICINE
     Indication: GOUTY ARTHRITIS
     Dosage: 0.5 MG, QD
     Route: 048
     Dates: start: 20150701, end: 20160218
  15. PREDNISOLONE. [Concomitant]
     Active Substance: PREDNISOLONE
     Indication: GOUTY ARTHRITIS
     Dosage: 8 MG, UNK
     Route: 048
     Dates: start: 20160630, end: 20160630
  16. FEBUXOSTAT. [Concomitant]
     Active Substance: FEBUXOSTAT
     Indication: GOUTY ARTHRITIS
     Dosage: 120 MG, QD
     Route: 048
     Dates: start: 20140101
  17. PREDNISOLONE. [Concomitant]
     Active Substance: PREDNISOLONE
     Dosage: 16 MG, UNK
     Route: 048
     Dates: start: 20160829, end: 20160830
  18. PREDNISOLONE. [Concomitant]
     Active Substance: PREDNISOLONE
     Dosage: 8 MG, UNK
     Route: 048
     Dates: start: 20160831, end: 20160903
  19. PREDNISOLONE. [Concomitant]
     Active Substance: PREDNISOLONE
     Dosage: 4 MG, UNK
     Route: 048
     Dates: start: 20160904, end: 20160907

REACTIONS (3)
  - Respiratory tract infection [Recovered/Resolved]
  - Pruritus [Recovered/Resolved]
  - Pruritus [Unknown]

NARRATIVE: CASE EVENT DATE: 20160518
